FAERS Safety Report 7396234-7 (Version None)
Quarter: 2011Q2

REPORT INFORMATION
  Report Type: 
  Country: None (occurrence: None)
  Receive Date: 20110406
  Receipt Date: 20110323
  Transmission Date: 20111010
  Serious: Yes (Hospitalization)
  Sender: FDA-Public Use
  Company Number: PL-CELGENEUS-129-21880-11011736

PATIENT
  Sex: Male

DRUGS (6)
  1. REVLIMID [Suspect]
     Dosage: 25 MILLIGRAM
     Route: 048
     Dates: start: 20110113
  2. DEXAMETHASONE [Concomitant]
     Route: 065
  3. ANUTRYPTYLINA [Concomitant]
     Indication: DEPRESSION
     Route: 065
     Dates: start: 20100319
  4. NITRENDYPINA [Concomitant]
     Indication: HYPERTENSION
     Route: 065
     Dates: start: 20100319
  5. EUTHYROX [Concomitant]
     Indication: HYPOTHYROIDISM
     Route: 065
     Dates: start: 20100319
  6. REVLIMID [Suspect]
     Indication: MULTIPLE MYELOMA
     Dosage: 25 MILLIGRAM
     Route: 048
     Dates: start: 20101119, end: 20101202

REACTIONS (5)
  - PNEUMONIA [None]
  - VOMITING [None]
  - BLOOD CREATININE INCREASED [None]
  - NAUSEA [None]
  - DEAFNESS [None]
